FAERS Safety Report 7427374-1 (Version None)
Quarter: 2011Q2

REPORT INFORMATION
  Report Type: 
  Country: None (occurrence: None)
  Receive Date: 20110420
  Receipt Date: 20110418
  Transmission Date: 20111010
  Serious: Yes (Life-Threatening)
  Sender: FDA-Public Use
  Company Number: US-PFIZER INC-2011045513

PATIENT
  Sex: Female

DRUGS (1)
  1. TOVIAZ [Suspect]
     Dosage: UNK

REACTIONS (4)
  - LOSS OF CONSCIOUSNESS [None]
  - SOMNOLENCE [None]
  - DYSPHAGIA [None]
  - PHARYNGEAL OEDEMA [None]
